FAERS Safety Report 7261378-7 (Version None)
Quarter: 2011Q1

REPORT INFORMATION
  Report Type: 
  Country: None (occurrence: None)
  Receive Date: 20110130
  Receipt Date: 20101021
  Transmission Date: 20110831
  Serious: No
  Sender: FDA-Public Use
  Company Number: US-ABBOTT-10P-163-0680117-00

PATIENT
  Age: 60 Year
  Sex: Male

DRUGS (5)
  1. HUMIRA [Suspect]
     Indication: PSORIASIS
     Dates: start: 20100601
  2. CLOBETASOL PROPIONTE USP [Concomitant]
     Indication: PSORIASIS
  3. HEADACHE PILLS [Concomitant]
     Indication: HEADACHE
  4. PAIN PILLS [Concomitant]
     Indication: SURGERY
  5. UNKNOWN MEDICATIONS [Concomitant]
     Indication: PRODUCT USED FOR UNKNOWN INDICATION

REACTIONS (1)
  - RASH MACULO-PAPULAR [None]
